FAERS Safety Report 4782412-X (Version None)
Quarter: 2005Q3

REPORT INFORMATION
  Report Type: 
  Country: None (occurrence: None)
  Receive Date: 20050929
  Receipt Date: 20040727
  Transmission Date: 20060218
  Serious: Yes (Other)
  Sender: FDA-Public Use
  Company Number: 376410

PATIENT
  Age: 82 Year
  Sex: Female

DRUGS (7)
  1. COREG [Suspect]
     Indication: DRUG USE FOR UNKNOWN INDICATION
     Route: 048
  2. VALTREX [Suspect]
     Dosage: 1G PER DAY
     Dates: start: 20050310, end: 20050315
  3. MULTIPLE MEDICATIONS [Concomitant]
  4. ACE INHIBITOR [Concomitant]
  5. BETA BLOCKER [Concomitant]
  6. PLAVIX [Concomitant]
  7. ZOCOR [Concomitant]

REACTIONS (6)
  - COLONIC HAEMORRHAGE [None]
  - CONFUSIONAL STATE [None]
  - LETHARGY [None]
  - MENTAL IMPAIRMENT [None]
  - PURPURA [None]
  - SPEECH DISORDER [None]
